FAERS Safety Report 12378967 (Version 3)
Quarter: 2016Q2

REPORT INFORMATION
  Report Type: Spontaneous
  Country: PT (occurrence: PT)
  Receive Date: 20160517
  Receipt Date: 20160617
  Transmission Date: 20160815
  Serious: Yes (Hospitalization)
  Sender: FDA-Public Use
  Company Number: PT-ABBVIE-16P-130-1628317-00

PATIENT
  Age: 31 Year
  Sex: Male

DRUGS (1)
  1. ADALIMUMAB [Suspect]
     Active Substance: ADALIMUMAB
     Indication: RHEUMATOID ARTHRITIS
     Route: 065
     Dates: start: 2011

REACTIONS (13)
  - Hepatotoxicity [Recovered/Resolved]
  - Lung disorder [Recovered/Resolved]
  - Acute kidney injury [Recovered/Resolved]
  - Pulmonary alveolar haemorrhage [Recovered/Resolved]
  - Tuberculosis [Recovered/Resolved]
  - Mycobacterium test positive [Recovered/Resolved]
  - Lymphadenopathy [Recovered/Resolved]
  - Respiratory failure [Recovered/Resolved]
  - Tubulointerstitial nephritis [Recovered/Resolved]
  - Lung infiltration [Recovered/Resolved]
  - Renal failure [Recovered/Resolved]
  - Monocytosis [Recovered/Resolved]
  - Renal tubular necrosis [Recovered/Resolved]
